FAERS Safety Report 8482911-3 (Version None)
Quarter: 2012Q3

REPORT INFORMATION
  Report Type: 
  Country: None (occurrence: None)
  Receive Date: 20120702
  Receipt Date: 20120621
  Transmission Date: 20120928
  Serious: Yes (Hospitalization, Other)
  Sender: FDA-Public Use
  Company Number: US-ELI_LILLY_AND_COMPANY-US201111004495

PATIENT
  Age: 85 Year
  Sex: Male

DRUGS (1)
  1. FORTEO [Suspect]
     Indication: OSTEOPOROSIS
     Dosage: UNK, UNKNOWN
     Route: 065

REACTIONS (8)
  - FLUID RETENTION [None]
  - MUSCULAR WEAKNESS [None]
  - PNEUMONIA [None]
  - NEOPLASM MALIGNANT [None]
  - CARDIAC OPERATION [None]
  - SURGERY [None]
  - BACK PAIN [None]
  - COMPRESSION FRACTURE [None]
